FAERS Safety Report 17292550 (Version 2)
Quarter: 2020Q1

REPORT INFORMATION
  Report Type: Spontaneous
  Country: US (occurrence: US)
  Receive Date: 20200121
  Receipt Date: 20200217
  Transmission Date: 20200409
  Serious: Yes (Other)
  Sender: FDA-Public Use
  Company Number: US-BAYER-2019-237384

PATIENT
  Age: 24 Year
  Sex: Female

DRUGS (1)
  1. MIRENA [Suspect]
     Active Substance: LEVONORGESTREL
     Indication: CONTRACEPTION
     Dosage: 20 ?G PER DAY, CONTINUOUSLY
     Route: 015
     Dates: start: 20180518, end: 20180630

REACTIONS (6)
  - Device malfunction [None]
  - Vaginal haemorrhage [None]
  - Genital haemorrhage [Not Recovered/Not Resolved]
  - Pelvic pain [None]
  - Device expulsion [Recovered/Resolved]
  - Metrorrhagia [None]

NARRATIVE: CASE EVENT DATE: 2018
